FAERS Safety Report 24672748 (Version 1)
Quarter: 2024Q4

REPORT INFORMATION
  Report Type: Spontaneous
  Country: DE (occurrence: DE)
  Receive Date: 20241127
  Receipt Date: 20241127
  Transmission Date: 20250115
  Serious: Yes (Other)
  Sender: STRIDES
  Company Number: DE-STRIDES ARCOLAB LIMITED-2024SP015496

PATIENT
  Age: 25 Year
  Sex: Male

DRUGS (14)
  1. MYCOPHENOLATE MOFETIL [Suspect]
     Active Substance: MYCOPHENOLATE MOFETIL
     Indication: Prophylaxis against graft versus host disease
     Dosage: UNK
     Route: 065
  2. MYCOPHENOLATE MOFETIL [Suspect]
     Active Substance: MYCOPHENOLATE MOFETIL
     Dosage: UNK, DOSE TAPPERED
     Route: 065
  3. CYCLOSPORINE [Suspect]
     Active Substance: CYCLOSPORINE
     Indication: Prophylaxis against graft versus host disease
     Dosage: UNK
     Route: 065
  4. CYCLOSPORINE [Suspect]
     Active Substance: CYCLOSPORINE
     Dosage: UNK, DOSE TAPPERED
     Route: 065
  5. TACROLIMUS [Suspect]
     Active Substance: TACROLIMUS
     Indication: Chronic graft versus host disease in liver
     Dosage: UNK
     Route: 065
  6. TACROLIMUS [Suspect]
     Active Substance: TACROLIMUS
     Indication: Chronic graft versus host disease in eye
  7. THYMOCYTE IMMUNE GLOBULIN NOS [Suspect]
     Active Substance: THYMOCYTE IMMUNE GLOBULIN NOS
     Indication: Prophylaxis against graft versus host disease
     Dosage: UNK
     Route: 065
  8. THYMOCYTE IMMUNE GLOBULIN NOS [Suspect]
     Active Substance: THYMOCYTE IMMUNE GLOBULIN NOS
     Dosage: UNK, DOSE TAPPERED
     Route: 065
  9. FINGOLIMOD [Suspect]
     Active Substance: FINGOLIMOD
     Indication: Viraemia
     Dosage: UNK
     Route: 065
  10. METHYLPREDNISOLONE [Suspect]
     Active Substance: METHYLPREDNISOLONE
     Indication: Chronic graft versus host disease in liver
     Dosage: UNK
     Route: 065
  11. METHYLPREDNISOLONE [Suspect]
     Active Substance: METHYLPREDNISOLONE
     Indication: Encephalitis
     Dosage: UNK, DOSE TAPPERED
     Route: 065
  12. METHYLPREDNISOLONE [Suspect]
     Active Substance: METHYLPREDNISOLONE
     Indication: Chronic graft versus host disease in eye
     Dosage: UNK, RESTARTED
     Route: 065
  13. NATALIZUMAB [Suspect]
     Active Substance: NATALIZUMAB
     Indication: Chronic graft versus host disease in liver
     Dosage: UNK
     Route: 065
  14. NATALIZUMAB [Suspect]
     Active Substance: NATALIZUMAB
     Indication: Chronic graft versus host disease in eye

REACTIONS (9)
  - Rebound effect [Unknown]
  - Disorientation [Unknown]
  - Retrograde amnesia [Unknown]
  - Seizure [Unknown]
  - Encephalitis [Not Recovered/Not Resolved]
  - Viraemia [Recovered/Resolved]
  - Chronic graft versus host disease in liver [Recovered/Resolved]
  - Chronic graft versus host disease in eye [Recovered/Resolved]
  - Off label use [Unknown]
